FAERS Safety Report 4295254-9 (Version None)
Quarter: 2004Q1

REPORT INFORMATION
  Report Type: 
  Country: None (occurrence: None)
  Receive Date: 20040216
  Receipt Date: 20030430
  Transmission Date: 20041129
  Serious: No
  Sender: FDA-Public Use
  Company Number: US-GLAXOSMITHKLINE-A0406865A

PATIENT
  Age: 43 Year
  Sex: Female

DRUGS (3)
  1. LAMICTAL [Suspect]
     Dosage: 25MG THREE TIMES PER DAY
     Route: 048
  2. CLONOPIN [Concomitant]
     Dosage: .5MG AT NIGHT
     Route: 048
     Dates: start: 20010101
  3. LITHIUM CARBONATE [Concomitant]
     Dosage: 15MG PER DAY
     Route: 048
     Dates: start: 20010101

REACTIONS (1)
  - MOUTH ULCERATION [None]
